FAERS Safety Report 17044999 (Version 2)
Quarter: 2019Q4

REPORT INFORMATION
  Report Type: Spontaneous
  Country: US (occurrence: US)
  Receive Date: 20191118
  Receipt Date: 20191227
  Transmission Date: 20200122
  Serious: No
  Sender: FDA-Public Use
  Company Number: US-SA-2019SA314340

PATIENT
  Age: 20 Year
  Sex: Male
  Weight: 51 kg

DRUGS (1)
  1. DUPIXENT [Suspect]
     Active Substance: DUPILUMAB
     Indication: DERMATITIS ATOPIC
     Dosage: ONE INJECTION IN THE ARM AND THE OTHER INJECTION IN THE ABDOMEN
     Dates: start: 20191101, end: 20191101

REACTIONS (4)
  - Swelling face [Unknown]
  - Pruritus [Unknown]
  - Eczema asteatotic [Unknown]
  - Rash papular [Unknown]

NARRATIVE: CASE EVENT DATE: 20191103
